APPROVED DRUG PRODUCT: XARELTO
Active Ingredient: RIVAROXABAN
Strength: 2.5MG
Dosage Form/Route: TABLET;ORAL
Application: N022406 | Product #004 | TE Code: AB
Applicant: JANSSEN PHARMACEUTICALS INC
Approved: Oct 11, 2018 | RLD: Yes | RS: No | Type: RX